FAERS Safety Report 7912737-8 (Version None)
Quarter: 2011Q4

REPORT INFORMATION
  Report Type: 
  Country: None (occurrence: None)
  Receive Date: 20111114
  Receipt Date: 20111108
  Transmission Date: 20120403
  Serious: Yes (Life-Threatening, Hospitalization, Disabling, Other)
  Sender: FDA-Public Use
  Company Number: GB-PFIZER INC-2011243703

PATIENT
  Age: 61 Year
  Sex: Female

DRUGS (4)
  1. SALBUTAMOL [Concomitant]
     Dosage: 2.5 MG, UNK
  2. LEVOTHYROXINE [Concomitant]
     Dosage: 25 UG, 1X/DAY
     Route: 048
  3. VARENICLINE TARTRATE [Suspect]
     Indication: SMOKING CESSATION THERAPY
     Dosage: UNK
     Route: 048
     Dates: start: 20110330, end: 20110716
  4. BUDESONIDE/FORMOTEROL FUMARATE [Concomitant]
     Dosage: 200MCG/5MCG, 2X/DAY

REACTIONS (9)
  - HEMIPARESIS [None]
  - CEREBRAL INFARCTION [None]
  - SUBARACHNOID HAEMORRHAGE [None]
  - ARTERIAL RUPTURE [None]
  - HEADACHE [None]
  - INTRACRANIAL ANEURYSM [None]
  - APHASIA [None]
  - COGNITIVE DISORDER [None]
  - EPILEPSY [None]
